FAERS Safety Report 5705739-3 (Version None)
Quarter: 2008Q2

REPORT INFORMATION
  Report Type: 
  Country: None (occurrence: None)
  Receive Date: 20080415
  Receipt Date: 20080404
  Transmission Date: 20081010
  Serious: Yes (Hospitalization)
  Sender: FDA-Public Use
  Company Number: B0515848A

PATIENT
  Age: 88 Year
  Sex: Female

DRUGS (9)
  1. AUGMENTIN '125' [Suspect]
     Dosage: 1G THREE TIMES PER DAY
     Route: 048
     Dates: start: 20071121, end: 20071210
  2. PREVISCAN [Suspect]
     Route: 048
     Dates: start: 20071126, end: 20080129
  3. CORDARONE [Suspect]
     Dosage: 200MG PER DAY
     Route: 065
     Dates: start: 20071122, end: 20071221
  4. LASILIX FAIBLE 20 MG [Suspect]
     Dosage: 20MG PER DAY
     Route: 048
     Dates: start: 20071128, end: 20080129
  5. DEROXAT [Concomitant]
     Indication: DRUG USE FOR UNKNOWN INDICATION
     Dosage: 10MG PER DAY
     Route: 048
     Dates: start: 20080111, end: 20080129
  6. DOLIPRANE [Concomitant]
     Indication: DRUG USE FOR UNKNOWN INDICATION
     Dosage: 1G THREE TIMES PER DAY
     Route: 048
     Dates: end: 20080129
  7. XANAX [Concomitant]
     Indication: ANXIETY
     Dosage: .125MG THREE TIMES PER DAY
     Route: 048
     Dates: end: 20071228
  8. PREDNISONE [Concomitant]
     Route: 048
     Dates: start: 20071121, end: 20071216
  9. ATARAX [Concomitant]
     Indication: PRURITUS
     Dosage: .125MCG THREE TIMES PER DAY
     Route: 048
     Dates: start: 20080103, end: 20080129

REACTIONS (12)
  - ALANINE AMINOTRANSFERASE INCREASED [None]
  - ASPARTATE AMINOTRANSFERASE INCREASED [None]
  - ASTHENIA [None]
  - BLOOD PHOSPHORUS INCREASED [None]
  - GAMMA-GLUTAMYLTRANSFERASE INCREASED [None]
  - HEPATITIS CHOLESTATIC [None]
  - JAUNDICE [None]
  - MALNUTRITION [None]
  - OCULAR ICTERUS [None]
  - PRURITUS [None]
  - SCRATCH [None]
  - WEIGHT DECREASED [None]
